FAERS Safety Report 4830964-3 (Version None)
Quarter: 2005Q4

REPORT INFORMATION
  Report Type: 
  Country: None (occurrence: None)
  Receive Date: 20051114
  Receipt Date: 20051028
  Transmission Date: 20060501
  Serious: Yes (Life-Threatening, Hospitalization)
  Sender: FDA-Public Use
  Company Number: 2005-02146

PATIENT
  Age: 69 Year
  Sex: Female
  Weight: 70 kg

DRUGS (11)
  1. VELCADE [Suspect]
     Indication: MULTIPLE MYELOMA
     Dosage: 1.30 MG/M2, 2/WEEK, INTRAVENOUS
     Route: 042
     Dates: start: 20050808, end: 20051003
  2. DOXIL [Suspect]
     Indication: MULTIPLE MYELOMA
     Dosage: 30.00 MG/M2, Q3WEEKS, INTRAVENOUS
     Route: 042
     Dates: start: 20050811, end: 20051001
  3. CAPTOPRIL [Concomitant]
  4. LEVOTHYROXINE SODIUM [Concomitant]
  5. INDAPAMIDE [Concomitant]
  6. SOTALOL HCL [Concomitant]
  7. TIANEPTINE (TIANEPTINE) [Concomitant]
  8. KETOPROFEN [Concomitant]
  9. RANITIDINE [Concomitant]
  10. ERYTHROPOIETIN (ERYTHROPOIETIN) [Concomitant]
  11. VITAMIN B6 [Concomitant]

REACTIONS (12)
  - CEREBRAL ISCHAEMIA [None]
  - COORDINATION ABNORMAL [None]
  - DEPRESSED LEVEL OF CONSCIOUSNESS [None]
  - DIARRHOEA [None]
  - HAEMOGLOBIN DECREASED [None]
  - HYPERTENSION [None]
  - ILEUS [None]
  - PERIPHERAL SENSORY NEUROPATHY [None]
  - RED BLOOD CELL COUNT DECREASED [None]
  - THROMBOCYTOPENIA [None]
  - VOMITING [None]
  - WHITE BLOOD CELL COUNT DECREASED [None]
